FAERS Safety Report 22891514 (Version 6)
Quarter: 2024Q2

REPORT INFORMATION
  Report Type: Spontaneous
  Country: CO (occurrence: CO)
  Receive Date: 20230901
  Receipt Date: 20240606
  Transmission Date: 20240715
  Serious: Yes (Hospitalization, Other)
  Sender: FDA-Public Use
  Company Number: CO-002147023-NVSC2020CO244568

PATIENT
  Age: 72 Year
  Sex: Male
  Weight: 52 kg

DRUGS (25)
  1. LOSARTAN [Suspect]
     Active Substance: LOSARTAN
     Indication: Hypertension
     Dosage: 50 MG, Q12H
     Route: 048
  2. LOSARTAN [Suspect]
     Active Substance: LOSARTAN
     Indication: Product used for unknown indication
  3. OLANZAPINE [Suspect]
     Active Substance: OLANZAPINE
     Indication: Anxiety
     Dosage: UNK UNK, QD
     Route: 048
  4. SERTRALINE [Suspect]
     Active Substance: SERTRALINE HYDROCHLORIDE
     Indication: Anxiety
     Dosage: UNK, QD
     Route: 048
  5. TAMSULOSIN [Suspect]
     Active Substance: TAMSULOSIN
     Dosage: 0.4 MG, QD
     Route: 048
  6. TAMSULOSIN [Suspect]
     Active Substance: TAMSULOSIN
     Indication: Prostatitis
     Dosage: 400 UG, QD
     Route: 048
  7. XOLAIR [Suspect]
     Active Substance: OMALIZUMAB
     Dosage: 150 MG, QMO
     Route: 058
     Dates: end: 202103
  8. XOLAIR [Suspect]
     Active Substance: OMALIZUMAB
     Dosage: 150 MG, BIW
     Route: 058
  9. XOLAIR [Suspect]
     Active Substance: OMALIZUMAB
     Dosage: 150 MG, BIW
     Route: 058
  10. XOLAIR [Suspect]
     Active Substance: OMALIZUMAB
     Dosage: 150 MG, EVERY 15 DAYS
     Route: 065
  11. XOLAIR [Suspect]
     Active Substance: OMALIZUMAB
     Indication: Asthma
     Dosage: 300 MG, QMO
     Route: 058
  12. XOLAIR [Suspect]
     Active Substance: OMALIZUMAB
     Dosage: 300 MG, QMO
     Route: 058
     Dates: start: 20210729
  13. XOLAIR [Suspect]
     Active Substance: OMALIZUMAB
     Dosage: 300 MG, QMO
     Route: 058
  14. XOLAIR [Suspect]
     Active Substance: OMALIZUMAB
     Dosage: 300 MG, QMO
     Route: 065
  15. XOLAIR [Suspect]
     Active Substance: OMALIZUMAB
     Dosage: UNK
     Route: 065
     Dates: start: 20221008
  16. XOLAIR [Suspect]
     Active Substance: OMALIZUMAB
     Dosage: UNK (JUL)
     Route: 065
  17. XOLAIR [Suspect]
     Active Substance: OMALIZUMAB
     Dosage: UNK (JUN)
     Route: 065
  18. CLONAZEPAM [Concomitant]
     Active Substance: CLONAZEPAM
     Indication: Anxiety
     Dosage: UNK UNK, QD
     Route: 048
  19. INSULIN NOS [Concomitant]
     Active Substance: INSULIN NOS
     Dosage: 40 DF, Q12H
     Route: 058
  20. INSULIN NOS [Concomitant]
     Active Substance: INSULIN NOS
     Dosage: 40 DF, Q12H
     Route: 059
  21. INSULIN NOS [Concomitant]
     Active Substance: INSULIN NOS
     Indication: Diabetes mellitus
     Dosage: UNK (IN THE MORNING 30 UNITS, IN THE AFTERNOON 40 UNITS)
     Route: 058
  22. INSULIN NOS [Concomitant]
     Active Substance: INSULIN NOS
     Dosage: UNK (IN THE MORNING 30 UNITS, IN THE AFTERNOON 40 UNITS)
     Route: 059
  23. OXYGEN [Concomitant]
     Active Substance: OXYGEN
     Indication: Product used for unknown indication
     Dosage: UNK (6 MONTHS AGO)
     Route: 065
  24. LINAGLIPTIN\METFORMIN HYDROCHLORIDE [Concomitant]
     Active Substance: LINAGLIPTIN\METFORMIN HYDROCHLORIDE
     Indication: Diabetes mellitus
     Dosage: 5 MG, QD
     Route: 048
  25. LINAGLIPTIN\METFORMIN HYDROCHLORIDE [Concomitant]
     Active Substance: LINAGLIPTIN\METFORMIN HYDROCHLORIDE
     Dosage: UNK UNK, QD
     Route: 048

REACTIONS (25)
  - Illness [Unknown]
  - Malaise [Unknown]
  - Haemorrhage [Unknown]
  - Respiratory disorder [Recovering/Resolving]
  - Blood pressure increased [Recovering/Resolving]
  - Dyspnoea [Unknown]
  - Abdominal distension [Recovering/Resolving]
  - Vomiting [Recovering/Resolving]
  - Eating disorder [Recovering/Resolving]
  - Chest pain [Recovering/Resolving]
  - COVID-19 [Unknown]
  - Choking [Unknown]
  - Headache [Unknown]
  - Pyrexia [Unknown]
  - Lower respiratory tract congestion [Unknown]
  - Chest discomfort [Unknown]
  - Laziness [Unknown]
  - Tension [Unknown]
  - Chills [Recovered/Resolved]
  - Asthma [Unknown]
  - Nasal congestion [Unknown]
  - Depression [Unknown]
  - Pain [Unknown]
  - Inappropriate schedule of product administration [Unknown]
  - Off label use [Unknown]

NARRATIVE: CASE EVENT DATE: 20200601
